FAERS Safety Report 6238850-1 (Version None)
Quarter: 2009Q2

REPORT INFORMATION
  Report Type: 
  Country: None (occurrence: None)
  Receive Date: 20090622
  Receipt Date: 20090610
  Transmission Date: 20091009
  Serious: No
  Sender: FDA-Public Use
  Company Number: JP-EISAI INC.-E3810-02694-SPO-JP

PATIENT
  Age: 64 Year
  Sex: Female

DRUGS (4)
  1. PARIET (RABEPRAZOLE) [Suspect]
     Indication: GASTRIC ULCER
     Route: 048
     Dates: start: 20060921, end: 20061017
  2. APLACE [Suspect]
     Route: 048
     Dates: start: 20060921, end: 20061017
  3. MAGTECT [Suspect]
     Dosage: UNKNOWN
     Route: 048
     Dates: start: 20060922, end: 20061017
  4. MINOFIT [Concomitant]
     Dosage: UNKNOWN
     Route: 065
     Dates: end: 20061127

REACTIONS (2)
  - ERYTHEMA [None]
  - LIVER DISORDER [None]
